FAERS Safety Report 21683158 (Version 1)
Quarter: 2022Q4

REPORT INFORMATION
  Report Type: Spontaneous
  Country: US (occurrence: None)
  Receive Date: 20221202
  Receipt Date: 20221202
  Transmission Date: 20230113
  Serious: Yes (Death)
  Sender: FDA-Public Use
  Company Number: None

PATIENT
  Age: 56 Year
  Sex: Female
  Weight: 65.5 kg

DRUGS (3)
  1. CLOZAPINE [Suspect]
     Active Substance: CLOZAPINE
     Indication: Schizophrenia
     Dosage: FREQUENCY : DAILY;?
     Route: 048
     Dates: start: 20221018, end: 20221119
  2. Benztropine 1 mg daily [Concomitant]
     Dates: start: 20220414, end: 20221201
  3. Aripiprazole (Abilify Maintena) 400 mg IM monthly [Concomitant]
     Dates: start: 20221010, end: 20221201

REACTIONS (4)
  - Neutrophil count increased [None]
  - Febrile neutropenia [None]
  - General physical health deterioration [None]
  - Multiple organ dysfunction syndrome [None]

NARRATIVE: CASE EVENT DATE: 20221122
